FAERS Safety Report 22055172 (Version 1)
Quarter: 2023Q1

REPORT INFORMATION
  Report Type: Spontaneous
  Country: None (occurrence: GB)
  Receive Date: 20230302
  Receipt Date: 20230302
  Transmission Date: 20230417
  Serious: Yes (Hospitalization)
  Sender: FDA-Public Use
  Company Number: GB-Canton Laboratories, LLC-2138639

PATIENT
  Age: 70 Year
  Sex: Female

DRUGS (15)
  1. NAPROSYN [Suspect]
     Active Substance: NAPROXEN
     Indication: Product used for unknown indication
     Dates: end: 20230123
  2. APIXABAN [Suspect]
     Active Substance: APIXABAN
     Dates: start: 20221229, end: 20230125
  3. DIAZEPAM [Concomitant]
     Active Substance: DIAZEPAM
  4. CALCIUM CARBONATE\CHOLECALCIFEROL [Concomitant]
     Active Substance: CALCIUM CARBONATE\CHOLECALCIFEROL
  5. BUDESONIDE [Concomitant]
     Active Substance: BUDESONIDE
  6. COCODAMOL [Concomitant]
     Active Substance: ACETAMINOPHEN\CODEINE PHOSPHATE
  7. CYCLIZINE [Concomitant]
     Active Substance: CYCLIZINE
  8. FEXOFENADINE [Concomitant]
     Active Substance: FEXOFENADINE HYDROCHLORIDE
  9. FLUCLOXACILLIN [Concomitant]
     Active Substance: FLUCLOXACILLIN
  10. OMEPRAZOLE [Concomitant]
     Active Substance: OMEPRAZOLE
  11. PAROXETINE [Concomitant]
     Active Substance: PAROXETINE
  12. PREGABALIN [Concomitant]
     Active Substance: PREGABALIN
  13. QUETIAPINE [Concomitant]
     Active Substance: QUETIAPINE
  14. ALBUTEROL [Concomitant]
     Active Substance: ALBUTEROL
  15. SALMETEROL [Concomitant]
     Active Substance: SALMETEROL

REACTIONS (2)
  - Medication error [Unknown]
  - Haemoglobin decreased [Unknown]

NARRATIVE: CASE EVENT DATE: 20230101
